FAERS Safety Report 10242438 (Version 4)
Quarter: 2014Q3

REPORT INFORMATION
  Report Type: Spontaneous
  Country: DE (occurrence: DE)
  Receive Date: 20140617
  Receipt Date: 20140729
  Transmission Date: 20150326
  Serious: Yes (Other)
  Sender: FDA-Public Use
  Company Number: GXKR2014DE002275

PATIENT
  Age: 72 Year
  Sex: Male

DRUGS (1)
  1. CARBAMAZEPINE. [Suspect]
     Active Substance: CARBAMAZEPINE
     Indication: EPILEPSY
     Dosage: UNK UKN, UNK
     Route: 048
     Dates: start: 201402, end: 201404

REACTIONS (11)
  - Salivary hypersecretion [Not Recovered/Not Resolved]
  - Dizziness [Not Recovered/Not Resolved]
  - Condition aggravated [Not Recovered/Not Resolved]
  - Pruritus generalised [Not Recovered/Not Resolved]
  - Skin fissures [Not Recovered/Not Resolved]
  - Acne [Not Recovered/Not Resolved]
  - Hand dermatitis [Not Recovered/Not Resolved]
  - Visual impairment [Not Recovered/Not Resolved]
  - Blister [Unknown]
  - Epilepsy [Not Recovered/Not Resolved]
  - Nausea [Not Recovered/Not Resolved]
